FAERS Safety Report 4983615-1 (Version None)
Quarter: 2006Q2

REPORT INFORMATION
  Report Type: 
  Country: None (occurrence: None)
  Receive Date: 20060425
  Receipt Date: 20060425
  Transmission Date: 20061013
  Serious: Yes (Other)
  Sender: FDA-Public Use
  Company Number: None

PATIENT
  Age: 47 Year
  Sex: Male
  Weight: 84.1 kg

DRUGS (7)
  1. ISOSORBIDE MONONITRATE [Suspect]
  2. FELODIPINE [Concomitant]
  3. MELOXICAM [Concomitant]
  4. NITROGLYCERIN [Concomitant]
  5. OMEPRAZOLE [Concomitant]
  6. TRAMADOL HCL [Concomitant]
  7. CYCLOBENZAPRINE HCL [Concomitant]

REACTIONS (1)
  - PALPITATIONS [None]
